FAERS Safety Report 4719952-5 (Version None)
Quarter: 2005Q3

REPORT INFORMATION
  Report Type: 
  Country: None (occurrence: None)
  Receive Date: 20050721
  Receipt Date: 20050210
  Transmission Date: 20060218
  Serious: No
  Sender: FDA-Public Use
  Company Number: US-GLAXOSMITHKLINE-A0544962A

PATIENT
  Age: 54 Year
  Sex: Male

DRUGS (21)
  1. AVANDIA [Suspect]
     Dosage: 2MG TWICE PER DAY
     Route: 048
     Dates: start: 20050209
  2. LANSOPRAZOLE [Concomitant]
  3. RANITIDINE [Concomitant]
  4. LEVOTHYROXINE [Concomitant]
  5. SALINE SPRAY [Concomitant]
  6. UNKNOWN MEDICATION [Concomitant]
  7. BACITRACIN ZINC OINTMENT [Concomitant]
  8. BECONASE AQ [Concomitant]
  9. ATROVENT [Concomitant]
  10. MYCELEX [Concomitant]
  11. NEOMYCIN + POLYMYXIN [Concomitant]
  12. TOBREX [Concomitant]
  13. ACIDOPHILIS [Concomitant]
  14. BENADRYL [Concomitant]
  15. ALLOPURINOL [Concomitant]
  16. COLCHICINE [Concomitant]
  17. MULTI-VITAMINS [Concomitant]
  18. DOCUSATE [Concomitant]
  19. METOPROLOL [Concomitant]
  20. ASPIRIN [Concomitant]
  21. SIMETHICONE [Concomitant]

REACTIONS (2)
  - ABDOMINAL PAIN UPPER [None]
  - GASTROOESOPHAGEAL REFLUX DISEASE [None]
